FAERS Safety Report 12317581 (Version 1)
Quarter: 2016Q2

REPORT INFORMATION
  Report Type: Spontaneous
  Country: US (occurrence: US)
  Receive Date: 20160429
  Receipt Date: 20160429
  Transmission Date: 20160815
  Serious: Yes (Other)
  Sender: FDA-Public Use
  Company Number: US-ENDO PHARMACEUTICALS INC.-2016-002870

PATIENT
  Age: 48 Year
  Sex: Female

DRUGS (1)
  1. BENZTROPINE MESYLATE TABLETS [Suspect]
     Active Substance: BENZTROPINE MESYLATE
     Indication: PRODUCT USED FOR UNKNOWN INDICATION
     Route: 065

REACTIONS (14)
  - Post-traumatic stress disorder [Unknown]
  - Headache [Unknown]
  - Suicide attempt [Unknown]
  - Sleep disorder [Unknown]
  - Depression [Unknown]
  - Disturbance in attention [Unknown]
  - Visual impairment [Unknown]
  - Monoplegia [Unknown]
  - Feeling abnormal [Unknown]
  - Tardive dyskinesia [Unknown]
  - Dry mouth [Unknown]
  - Tremor [Unknown]
  - Tooth injury [Unknown]
  - Pain in extremity [Unknown]
